FAERS Safety Report 15655212 (Version 1)
Quarter: 2018Q4

REPORT INFORMATION
  Report Type: Spontaneous
  Country: DE (occurrence: DE)
  Receive Date: 20181126
  Receipt Date: 20181126
  Transmission Date: 20190205
  Serious: Yes (Other)
  Sender: FDA-Public Use
  Company Number: DE-ELI_LILLY_AND_COMPANY-DE201811009604

PATIENT
  Age: 35 Year
  Sex: Male

DRUGS (10)
  1. METHADONE [Interacting]
     Active Substance: METHADONE HYDROCHLORIDE
     Dosage: 4.5 ML, DAILY
     Route: 065
     Dates: start: 19991031
  2. ZYPREXA [Suspect]
     Active Substance: OLANZAPINE
     Indication: PRODUCT USED FOR UNKNOWN INDICATION
     Dosage: 5 MG, DAILY
     Route: 065
     Dates: start: 19991031
  3. TEGRETAL [Interacting]
     Active Substance: CARBAMAZEPINE
     Dosage: 600 MG, DAILY
     Route: 065
     Dates: start: 19991101
  4. TEGRETAL [Interacting]
     Active Substance: CARBAMAZEPINE
     Dosage: 400 MG, DAILY
     Route: 065
     Dates: start: 19991031
  5. METHADONE [Interacting]
     Active Substance: METHADONE HYDROCHLORIDE
     Dosage: 5 ML, DAILY
     Route: 065
     Dates: start: 19991030
  6. TEGRETAL [Interacting]
     Active Substance: CARBAMAZEPINE
     Indication: PRODUCT USED FOR UNKNOWN INDICATION
     Dosage: 300 MG, DAILY
     Route: 065
     Dates: start: 19991030
  7. METHADONE [Interacting]
     Active Substance: METHADONE HYDROCHLORIDE
     Indication: PRODUCT USED FOR UNKNOWN INDICATION
     Dosage: 4 ML, DAILY
     Route: 065
     Dates: start: 19991029
  8. DIAZEPAM. [Interacting]
     Active Substance: DIAZEPAM
     Indication: PRODUCT USED FOR UNKNOWN INDICATION
     Dosage: 35 MG, DAILY
     Route: 065
     Dates: start: 19991030
  9. DIAZEPAM. [Interacting]
     Active Substance: DIAZEPAM
     Dosage: 45 MG, DAILY
     Route: 065
     Dates: start: 19991031
  10. DIAZEPAM. [Interacting]
     Active Substance: DIAZEPAM
     Dosage: 20 MG, DAILY
     Route: 065
     Dates: start: 19991101

REACTIONS (5)
  - Dysarthria [Recovered/Resolved]
  - Somnolence [Recovered/Resolved]
  - Drug interaction [Unknown]
  - Psychomotor retardation [Recovered/Resolved]
  - Altered state of consciousness [Recovered/Resolved]

NARRATIVE: CASE EVENT DATE: 19991031
